FAERS Safety Report 8396764-5 (Version None)
Quarter: 2012Q2

REPORT INFORMATION
  Report Type: 
  Country: None (occurrence: None)
  Receive Date: 20120530
  Receipt Date: 20120528
  Transmission Date: 20120825
  Serious: Yes (Other)
  Sender: FDA-Public Use
  Company Number: PHHY2009CA46390

PATIENT
  Sex: Female

DRUGS (4)
  1. SANDOSTATIN LAR [Suspect]
     Indication: ACROMEGALY
     Dosage: 30 MG, QMO
     Route: 030
     Dates: start: 20080812
  2. SANDOSTATIN LAR [Suspect]
     Dosage: 30 MG, EVERY 4 WEEKS
     Route: 030
  3. SANDOSTATIN LAR [Suspect]
     Dosage: 4 MG, QMO
     Route: 030
     Dates: start: 20080812
  4. OTHER ANTIHYPERTENSIVES [Concomitant]

REACTIONS (3)
  - TREMOR [None]
  - BLOOD PRESSURE INCREASED [None]
  - HEART RATE INCREASED [None]
